FAERS Safety Report 17423045 (Version 1)
Quarter: 2020Q1

REPORT INFORMATION
  Report Type: Spontaneous
  Country: IT (occurrence: IT)
  Receive Date: 20200216
  Receipt Date: 20200216
  Transmission Date: 20200409
  Serious: Yes (Death, Other)
  Sender: FDA-Public Use
  Company Number: IT-AMGEN-ITASP2020025012

PATIENT

DRUGS (9)
  1. FILGRASTIM [Suspect]
     Active Substance: FILGRASTIM
     Dosage: 5 MICROGRAM/KILOGRAM ON DAYS 1-6
     Route: 058
  2. FILGRASTIM [Suspect]
     Active Substance: FILGRASTIM
     Dosage: 5 MICROGRAM/KILOGRAM ON DAYS 1-5
     Route: 058
  3. GEMTUZUMAB OZOGAMICIN [Concomitant]
     Active Substance: GEMTUZUMAB OZOGAMICIN
     Indication: ACUTE MYELOID LEUKAEMIA
     Dosage: 6 MILLIGRAM/SQ. METER FOR 2 H ON DAY 9
     Route: 042
  4. GEMTUZUMAB OZOGAMICIN [Concomitant]
     Active Substance: GEMTUZUMAB OZOGAMICIN
     Indication: ACUTE MYELOID LEUKAEMIA
  5. ARA-C [Concomitant]
     Active Substance: CYTARABINE
     Indication: ACUTE MYELOID LEUKAEMIA
     Dosage: 100 MILLIGRAM/SQ. METER ON DAYS 4-8
     Route: 042
  6. FILGRASTIM [Suspect]
     Active Substance: FILGRASTIM
     Dosage: 5 MICROGRAM/KILOGRAM ON DAYS 3-7
     Route: 058
  7. FILGRASTIM [Suspect]
     Active Substance: FILGRASTIM
     Dosage: 5 MICROGRAM/KILOGRAM ON DAYS 1-8
     Route: 058
  8. ARA-C [Concomitant]
     Active Substance: CYTARABINE
     Indication: ACUTE MYELOID LEUKAEMIA
  9. FILGRASTIM [Suspect]
     Active Substance: FILGRASTIM
     Indication: PRODUCT USED FOR UNKNOWN INDICATION
     Dosage: 5 MICROGRAM/KILOGRAM
     Route: 058

REACTIONS (14)
  - Bladder cancer recurrent [Fatal]
  - Bronchopulmonary aspergillosis [Fatal]
  - Hyperbilirubinaemia [Recovered/Resolved]
  - Venoocclusive disease [Fatal]
  - Neutropenia [Unknown]
  - Therapeutic product effect incomplete [Unknown]
  - Cerebral ischaemia [Fatal]
  - Haemorrhage intracranial [Fatal]
  - Transaminases [Recovered/Resolved]
  - Bacterial sepsis [Fatal]
  - Diarrhoea [Unknown]
  - Aplasia [Fatal]
  - Gastrointestinal haemorrhage [Fatal]
  - Thrombocytopenia [Unknown]
